FAERS Safety Report 6423098-8 (Version None)
Quarter: 2009Q4

REPORT INFORMATION
  Report Type: 
  Country: None (occurrence: None)
  Receive Date: 20091102
  Receipt Date: 20091028
  Transmission Date: 20100525
  Serious: Yes (Life-Threatening)
  Sender: FDA-Public Use
  Company Number: GB-ASTRAZENECA-2009SE23058

PATIENT
  Age: 78 Year
  Sex: Male
  Weight: 108 kg

DRUGS (11)
  1. SYMBICORT [Suspect]
     Route: 055
  2. SERETIDE [Suspect]
     Indication: CHRONIC OBSTRUCTIVE PULMONARY DISEASE
     Dosage: 500,1 DOSE TWICE A DAY
     Route: 055
     Dates: start: 20090424, end: 20090514
  3. SERETIDE [Suspect]
     Dosage: 250, 2 PUFFS TWICE PER DAY
     Route: 055
     Dates: start: 20090907, end: 20090918
  4. AMLODIPINE [Concomitant]
  5. FUROSEMIDE [Concomitant]
  6. PERINDOPRIL [Concomitant]
  7. QVAR 40 [Concomitant]
  8. SEREVENT [Concomitant]
  9. SIMVASTATIN [Concomitant]
  10. SPIRIVA [Concomitant]
  11. WARFARIN SODIUM [Concomitant]

REACTIONS (5)
  - DYSPHONIA [None]
  - IMPAIRED DRIVING ABILITY [None]
  - MALAISE [None]
  - MUSCLE SPASMS [None]
  - ORAL CANDIDIASIS [None]
